FAERS Safety Report 12955927 (Version 3)
Quarter: 2017Q1

REPORT INFORMATION
  Report Type: Spontaneous
  Country: CN (occurrence: CN)
  Receive Date: 20161118
  Receipt Date: 20170119
  Transmission Date: 20170428
  Serious: Yes (Other)
  Sender: FDA-Public Use
  Company Number: CN-GLAXOSMITHKLINE-CN2016GSK167553

PATIENT
  Age: 89 Year
  Sex: Female

DRUGS (1)
  1. BACTROBAN [Suspect]
     Active Substance: MUPIROCIN\MUPIROCIN CALCIUM
     Indication: NEOPLASM
     Dosage: UNK
     Route: 061
     Dates: start: 201603

REACTIONS (3)
  - Condition aggravated [Unknown]
  - Vulval abscess [Unknown]
  - Intentional product use issue [Unknown]
